APPROVED DRUG PRODUCT: CICLOPIROX
Active Ingredient: CICLOPIROX
Strength: 0.77% **Federal Register determination that product was not discontinued or withdrawn for safety or effectiveness reasons**
Dosage Form/Route: GEL;TOPICAL
Application: N020519 | Product #001
Applicant: ALVOGEN INC
Approved: Jul 21, 1997 | RLD: Yes | RS: No | Type: DISCN